FAERS Safety Report 8856461 (Version 2)
Quarter: 2012Q4

REPORT INFORMATION
  Report Type: 
  Country: US (occurrence: None)
  Receive Date: 20121024
  Receipt Date: 20121214
  Transmission Date: 20130627
  Serious: Yes (Other)
  Sender: FDA-Public Use
  Company Number: None

PATIENT
  Age: 47 Year
  Sex: Male
  Weight: 113.4 kg

DRUGS (2)
  1. BACITRACIN [Suspect]
     Indication: SURGICAL SITE REACTION
     Route: 042
     Dates: start: 20121001, end: 20121001
  2. BACITRACIN [Suspect]
     Indication: INFECTION
     Route: 042
     Dates: start: 20121001, end: 20121001

REACTIONS (5)
  - Nausea [None]
  - Photophobia [None]
  - Headache [None]
  - Musculoskeletal stiffness [None]
  - Musculoskeletal discomfort [None]
